FAERS Safety Report 17043609 (Version 1)
Quarter: 2019Q4

REPORT INFORMATION
  Report Type: Spontaneous
  Country: US (occurrence: US)
  Receive Date: 20191017
  Receipt Date: 20191017
  Transmission Date: 20200122
  Serious: Yes (Disabling)
  Sender: FDA-Public Use
  Company Number: None

PATIENT
  Age: 65 Year
  Sex: Female
  Weight: 86 kg

DRUGS (10)
  1. GABAPENTIN. [Concomitant]
     Active Substance: GABAPENTIN
  2. XIFAN [Concomitant]
  3. TEMAZEPAM PRN [Concomitant]
  4. IMODIUM [Concomitant]
     Active Substance: LOPERAMIDE HYDROCHLORIDE
  5. IMITREX PRN [Concomitant]
  6. REPATHA [Suspect]
     Active Substance: EVOLOCUMAB
     Indication: BLOOD CHOLESTEROL INCREASED
     Dates: start: 201601, end: 201904
  7. SERTRALINE [Concomitant]
     Active Substance: SERTRALINE HYDROCHLORIDE
  8. HYOSCYAMINE PRN [Concomitant]
  9. PROBIOTICS [Concomitant]
     Active Substance: PROBIOTICS NOS
  10. VALACYCLOVIN PRN [Concomitant]

REACTIONS (7)
  - Paraesthesia [None]
  - Lhermitte^s sign [None]
  - Muscular weakness [None]
  - Neuroendocrine tumour [None]
  - Diarrhoea [None]
  - Neuropathy peripheral [None]
  - Tremor [None]

NARRATIVE: CASE EVENT DATE: 2018
